FAERS Safety Report 10264279 (Version 1)
Quarter: 2014Q2

REPORT INFORMATION
  Report Type: Spontaneous
  Country: US (occurrence: None)
  Receive Date: 20140624
  Receipt Date: 20140624
  Transmission Date: 20141212
  Serious: Yes (Disabling)
  Sender: FDA-Public Use
  Company Number: None

PATIENT
  Age: 85 Year
  Sex: Male
  Weight: 90.72 kg

DRUGS (1)
  1. ZITHROMAX Z-PAK [Suspect]
     Dosage: TWICE DAILY, TAKEN BY MOUTH
     Route: 048

REACTIONS (5)
  - Vomiting [None]
  - Asthenia [None]
  - Abasia [None]
  - Eye swelling [None]
  - Diplopia [None]
